FAERS Safety Report 23958941 (Version 5)
Quarter: 2025Q3

REPORT INFORMATION
  Report Type: Report from Study
  Country: US (occurrence: US)
  Receive Date: 20240611
  Receipt Date: 20250905
  Transmission Date: 20251021
  Serious: No
  Sender: SANOFI AVENTIS
  Company Number: US-SA-SAC20240606001017

PATIENT
  Age: 68 Year
  Sex: Female
  Weight: 114 kg

DRUGS (2)
  1. DUPILUMAB [Suspect]
     Active Substance: DUPILUMAB
     Indication: Dermatitis atopic
     Dosage: 300 MG, QOW
     Dates: start: 202403
  2. DUPILUMAB [Suspect]
     Active Substance: DUPILUMAB
     Indication: Chronic actinic dermatitis

REACTIONS (3)
  - Urinary tract infection [Unknown]
  - Arthralgia [Unknown]
  - Off label use [Unknown]

NARRATIVE: CASE EVENT DATE: 20240101
